FAERS Safety Report 17911287 (Version 2)
Quarter: 2021Q2

REPORT INFORMATION
  Report Type: Spontaneous
  Country: ES (occurrence: ES)
  Receive Date: 20200618
  Receipt Date: 20210628
  Transmission Date: 20210717
  Serious: Yes (Hospitalization)
  Sender: FDA-Public Use
  Company Number: ES-TEVA-2020-ES-1790662

PATIENT
  Age: 52 Year
  Sex: Male

DRUGS (3)
  1. NIVOLUMAB [Suspect]
     Active Substance: NIVOLUMAB
     Indication: NASOPHARYNGEAL CANCER
     Route: 065
  2. CARBOPLATIN. [Suspect]
     Active Substance: CARBOPLATIN
     Indication: NASOPHARYNGEAL CANCER
     Dosage: DOSE: AREA UNDER CURVE 2
     Route: 065
     Dates: start: 2018
  3. GEMCITABINE. [Suspect]
     Active Substance: GEMCITABINE
     Indication: NASOPHARYNGEAL CANCER
     Route: 065
     Dates: start: 2018

REACTIONS (3)
  - Off label use [Unknown]
  - Mucosal inflammation [Recovered/Resolved]
  - Pancytopenia [Recovered/Resolved]

NARRATIVE: CASE EVENT DATE: 2018
